FAERS Safety Report 17907596 (Version 1)
Quarter: 2020Q2

REPORT INFORMATION
  Report Type: Spontaneous
  Country: DE (occurrence: DE)
  Receive Date: 20200617
  Receipt Date: 20200617
  Transmission Date: 20200714
  Serious: Yes (Hospitalization)
  Sender: FDA-Public Use
  Company Number: DE-ELI_LILLY_AND_COMPANY-DE202006005117

PATIENT
  Age: 84 Year
  Sex: Female

DRUGS (5)
  1. RANEXA [Suspect]
     Active Substance: RANOLAZINE
     Indication: PRODUCT USED FOR UNKNOWN INDICATION
     Dosage: 375 MG, UNKNOWN
     Route: 065
  2. ALENDRONSAEURE [Concomitant]
     Active Substance: ALENDRONATE SODIUM
     Dosage: 70 MG / WOCHE, NK
  3. DULOXETINE HYDROCHLORIDE. [Suspect]
     Active Substance: DULOXETINE HYDROCHLORIDE
     Indication: PRODUCT USED FOR UNKNOWN INDICATION
     Dosage: 40 MG, UNKNOWN
     Route: 065
  4. VOCADO HCT [Suspect]
     Active Substance: AMLODIPINE BESYLATE\HYDROCHLOROTHIAZIDE\OLMESARTAN MEDOXOMIL
     Indication: PRODUCT USED FOR UNKNOWN INDICATION
     Dosage: 5|12.5|20 MG
     Route: 065
  5. JODID [Concomitant]
     Active Substance: IODINE
     Dosage: 0.2 MG, NK

REACTIONS (4)
  - Condition aggravated [Unknown]
  - Dehydration [Unknown]
  - Bradycardia [Unknown]
  - Dizziness [Unknown]
